FAERS Safety Report 5465483-7 (Version None)
Quarter: 2007Q3

REPORT INFORMATION
  Report Type: 
  Country: None (occurrence: None)
  Receive Date: 20070920
  Receipt Date: 20070920
  Transmission Date: 20080115
  Serious: No
  Sender: FDA-Public Use
  Company Number: None

PATIENT
  Sex: Male

DRUGS (1)
  1. NIASPAN ER TABLETS 500MG KOS PHARMACEUTICALS [Suspect]
     Indication: BLOOD CHOLESTEROL INCREASED
     Dosage: TAKE 1 TABLET BY MOUTH DAILY
     Route: 048
     Dates: start: 20070806

REACTIONS (2)
  - RASH ERYTHEMATOUS [None]
  - SKIN BURNING SENSATION [None]
